FAERS Safety Report 7099203-X (Version None)
Quarter: 2010Q4

REPORT INFORMATION
  Report Type: 
  Country: None (occurrence: None)
  Receive Date: 20101112
  Receipt Date: 20101103
  Transmission Date: 20110411
  Serious: Yes (Hospitalization, Other)
  Sender: FDA-Public Use
  Company Number: US-JNJFOC-20100707441

PATIENT
  Sex: Male

DRUGS (15)
  1. LEVAQUIN [Suspect]
     Indication: UPPER RESPIRATORY TRACT INFECTION
     Route: 048
  2. LEVAQUIN [Suspect]
     Indication: SINUSITIS
     Route: 048
  3. LEVAQUIN [Suspect]
     Indication: PHARYNGITIS
     Route: 048
  4. LEVAQUIN [Suspect]
     Indication: COLONOSCOPY
     Route: 048
  5. LEVAQUIN [Suspect]
     Indication: DIVERTICULITIS
     Route: 048
  6. PREDNISONE [Suspect]
     Indication: DIARRHOEA
     Route: 048
  7. PREDNISONE [Suspect]
     Route: 048
  8. PREDNISONE [Suspect]
     Indication: UPPER RESPIRATORY TRACT INFECTION
     Route: 048
  9. PREDNISONE [Suspect]
     Route: 048
  10. PREDNISONE [Suspect]
     Indication: SINUSITIS
     Route: 048
  11. PREDNISONE [Suspect]
     Route: 048
  12. PREDNISONE [Suspect]
     Indication: URINARY TRACT INFECTION
     Route: 048
  13. PREDNISONE [Suspect]
     Route: 048
  14. PREDNISONE [Suspect]
     Indication: DIVERTICULITIS
     Route: 048
  15. PREDNISONE [Suspect]
     Route: 048

REACTIONS (2)
  - MENISCUS LESION [None]
  - ROTATOR CUFF SYNDROME [None]
